FAERS Safety Report 7038366-9 (Version None)
Quarter: 2010Q4

REPORT INFORMATION
  Report Type: 
  Country: None (occurrence: None)
  Receive Date: 20101011
  Receipt Date: 20100120
  Transmission Date: 20110411
  Serious: No
  Sender: FDA-Public Use
  Company Number: US-PFIZER INC-2010004374

PATIENT
  Sex: Female

DRUGS (5)
  1. NEURONTIN [Suspect]
     Indication: JOINT INJURY
     Dosage: UNK
     Route: 048
     Dates: end: 20091201
  2. CYMBALTA [Concomitant]
  3. HYDROCHLOROTHIAZIDE [Concomitant]
  4. TRAMADOL [Concomitant]
  5. LIDODERM [Concomitant]

REACTIONS (1)
  - GINGIVITIS [None]
